FAERS Safety Report 4629413-X (Version None)
Quarter: 2005Q2

REPORT INFORMATION
  Report Type: 
  Country: None (occurrence: None)
  Receive Date: 20050405
  Receipt Date: 20050323
  Transmission Date: 20051028
  Serious: Yes (Hospitalization)
  Sender: FDA-Public Use
  Company Number: DSA_26186_2005

PATIENT
  Age: 71 Year
  Sex: Male

DRUGS (3)
  1. ENALAPRIL MALEATE [Suspect]
     Dosage: 5 MG QD PO
     Route: 048
  2. OMEPRAZOLE [Suspect]
     Dosage: 20 MG QD PO
     Route: 048
  3. AUGMENTIN '125' [Suspect]
     Indication: HORDEOLUM
     Dosage: 1 TAB Q DAY PO
     Route: 048
     Dates: start: 20041101

REACTIONS (2)
  - DRUG INTERACTION [None]
  - HEPATITIS CHOLESTATIC [None]
